FAERS Safety Report 18522203 (Version 3)
Quarter: 2021Q3

REPORT INFORMATION
  Report Type: Report from Study
  Country: US (occurrence: US)
  Receive Date: 20201119
  Receipt Date: 20210722
  Transmission Date: 20211014
  Serious: Yes (Other)
  Sender: FDA-Public Use
  Company Number: US-TAKEDA-2020TUS050001

PATIENT
  Sex: Female
  Weight: 134 kg

DRUGS (24)
  1. DIPHENHYDRAMINE. [Concomitant]
     Active Substance: DIPHENHYDRAMINE
     Indication: PRODUCT USED FOR UNKNOWN INDICATION
     Dosage: UNK
     Route: 065
  2. SINGULAIR [Concomitant]
     Active Substance: MONTELUKAST SODIUM
     Indication: PRODUCT USED FOR UNKNOWN INDICATION
     Route: 065
  3. PROVERA [Concomitant]
     Active Substance: MEDROXYPROGESTERONE ACETATE
  4. SODIUM CHLORIDE. [Concomitant]
     Active Substance: SODIUM CHLORIDE
     Indication: PRODUCT USED FOR UNKNOWN INDICATION
     Dosage: UNK
     Route: 065
  5. PREMARIN [Concomitant]
     Active Substance: ESTROGENS, CONJUGATED
     Indication: PRODUCT USED FOR UNKNOWN INDICATION
     Route: 065
  6. LOTREL [LOTEPREDNOL ETABONATE] [Concomitant]
     Active Substance: LOTEPREDNOL ETABONATE
     Indication: PRODUCT USED FOR UNKNOWN INDICATION
     Route: 065
  7. FISH OIL [Concomitant]
     Active Substance: FISH OIL
     Indication: PRODUCT USED FOR UNKNOWN INDICATION
     Dosage: UNK
     Route: 065
  8. GLUCOSAMINE + CHONDROITIN COMPLEX [Concomitant]
     Active Substance: CHONDROITIN SULFATE (BOVINE)\GLUCOSAMINE HYDROCHLORIDE
     Indication: PRODUCT USED FOR UNKNOWN INDICATION
     Route: 065
  9. BONIVA [Concomitant]
     Active Substance: IBANDRONATE SODIUM
     Indication: PRODUCT USED FOR UNKNOWN INDICATION
     Route: 065
  10. CALCIUM D3 [Concomitant]
     Active Substance: CALCIUM\CHOLECALCIFEROL
  11. ASPIRIN [ACETYLSALICYLIC ACID] [Concomitant]
     Active Substance: ASPIRIN
     Indication: PRODUCT USED FOR UNKNOWN INDICATION
     Route: 065
  12. SYNTHROID [Concomitant]
     Active Substance: LEVOTHYROXINE SODIUM
     Indication: PRODUCT USED FOR UNKNOWN INDICATION
     Route: 065
  13. VITAMIN 15 [Concomitant]
     Indication: PRODUCT USED FOR UNKNOWN INDICATION
     Route: 065
  14. MULTIVITAMINS + MINERALS PLUS LUTEIN [Concomitant]
     Active Substance: MINERALS\VITAMINS
  15. HUMAN NORMAL IMMUNOGLOBULIN; LIQUID [Suspect]
     Active Substance: HUMAN IMMUNOGLOBULIN G
     Indication: IMMUNODEFICIENCY COMMON VARIABLE
     Dosage: 30 GRAM, Q4WEEKS
     Route: 042
     Dates: start: 20091022
  16. HEPARIN [Concomitant]
     Active Substance: HEPARIN SODIUM
     Indication: PRODUCT USED FOR UNKNOWN INDICATION
  17. GARLIC [ALLIUM SATIVUM] [Concomitant]
     Active Substance: GARLIC
     Indication: PRODUCT USED FOR UNKNOWN INDICATION
     Route: 065
  18. HAIR, SKIN + NAILS [BIOTIN] [Concomitant]
  19. VITAMIN E NATURAL [TOCOPHEROL] [Concomitant]
     Indication: PRODUCT USED FOR UNKNOWN INDICATION
     Route: 065
  20. ESTROGEN NOS;METHYLTESTOSTERONE [Concomitant]
     Indication: PRODUCT USED FOR UNKNOWN INDICATION
     Route: 065
  21. ACETAMINOPHEN + COD. PHOSP. [Concomitant]
     Active Substance: ACETAMINOPHEN\CODEINE PHOSPHATE
     Indication: PRODUCT USED FOR UNKNOWN INDICATION
     Dosage: UNK
     Route: 065
  22. EPINEPHRINE [EPINEPHRINE HYDROCHLORIDE] [Concomitant]
     Indication: PRODUCT USED FOR UNKNOWN INDICATION
     Dosage: UNK
     Route: 065
  23. LUTEIN [XANTOFYL;ZEAXANTHIN] [Concomitant]
     Indication: PRODUCT USED FOR UNKNOWN INDICATION
     Route: 065
  24. SINGULAIR [Concomitant]
     Active Substance: MONTELUKAST SODIUM

REACTIONS (3)
  - Salmonellosis [Not Recovered/Not Resolved]
  - Gastrointestinal infection [Not Recovered/Not Resolved]
  - Clostridium difficile infection [Not Recovered/Not Resolved]
